FAERS Safety Report 21333287 (Version 1)
Quarter: 2022Q3

REPORT INFORMATION
  Report Type: Report from Study
  Country: ES (occurrence: ES)
  Receive Date: 20220914
  Receipt Date: 20220914
  Transmission Date: 20221026
  Serious: Yes (Life-Threatening, Hospitalization, Disabling, Other)
  Sender: FDA-Public Use
  Company Number: None

PATIENT

DRUGS (3)
  1. NUCYNTA ER [Suspect]
     Active Substance: TAPENTADOL HYDROCHLORIDE
     Indication: Product used for unknown indication
     Dosage: 150 MG, BID
     Route: 048
     Dates: start: 20141027, end: 20220107
  2. LORMETAZEPAM [Suspect]
     Active Substance: LORMETAZEPAM
     Indication: Product used for unknown indication
     Dosage: 1 DOSAGE FORM, 1/DAY
     Route: 048
     Dates: start: 20141119, end: 20220107
  3. TRAZODONE HYDROCHLORIDE [Suspect]
     Active Substance: TRAZODONE HYDROCHLORIDE
     Indication: Product used for unknown indication
     Dosage: 1 DOSAGE FORM, 1/DAY
     Route: 048
     Dates: start: 20170530, end: 20220107

REACTIONS (4)
  - Acute respiratory failure [Recovered/Resolved]
  - Dyspnoea [Not Recovered/Not Resolved]
  - Hypoxic-ischaemic encephalopathy [Recovered/Resolved]
  - Hypoventilation [Not Recovered/Not Resolved]

NARRATIVE: CASE EVENT DATE: 20211228
